FAERS Safety Report 6779183-4 (Version None)
Quarter: 2010Q2

REPORT INFORMATION
  Report Type: 
  Country: None (occurrence: None)
  Receive Date: 20100618
  Receipt Date: 20100614
  Transmission Date: 20101027
  Serious: Yes (Death)
  Sender: FDA-Public Use
  Company Number: JP-ROCHE-691381

PATIENT
  Sex: Female

DRUGS (14)
  1. TOCILIZUMAB [Suspect]
     Indication: RHEUMATOID ARTHRITIS
     Route: 041
     Dates: start: 20090618, end: 20090618
  2. TOCILIZUMAB [Suspect]
     Route: 041
     Dates: start: 20090713, end: 20090713
  3. TOCILIZUMAB [Suspect]
     Route: 041
     Dates: start: 20090810, end: 20090810
  4. TOCILIZUMAB [Suspect]
     Route: 041
     Dates: start: 20090904, end: 20090904
  5. TOCILIZUMAB [Suspect]
     Route: 041
     Dates: start: 20091002, end: 20091002
  6. TOCILIZUMAB [Suspect]
     Route: 041
     Dates: start: 20091030, end: 20091030
  7. TOCILIZUMAB [Suspect]
     Route: 041
     Dates: start: 20091127, end: 20091127
  8. ISCOTIN [Concomitant]
     Dosage: FORM : PERORAL AGENT
     Route: 048
     Dates: start: 20090618
  9. PREDNISOLONE [Concomitant]
     Dosage: DOSE FORM: PERORAL AGENT
     Route: 048
  10. BLOPRESS [Concomitant]
     Dosage: GENERIC NAME:CANDESARTAN CILEXETIL
     Route: 048
  11. NORVASC [Concomitant]
     Dosage: GENERIC NAME: AMLODIPINE BESILATE
     Route: 048
  12. PARIET [Concomitant]
     Dosage: GENERIC NAME: SODIUM RABEPRAZOLE
     Route: 048
  13. PYDOXAL [Concomitant]
     Dosage: DRUG REPORTED AS PYDOXAL TAB
     Route: 048
     Dates: start: 20090618
  14. BONALON [Concomitant]
     Dosage: GENERIC NAME: ALENDRONATE SODIUM HYDRATE, DRUG NAME REPORTED AS BONALON 35MG
     Route: 048

REACTIONS (1)
  - SUBARACHNOID HAEMORRHAGE [None]
